FAERS Safety Report 5690436-3 (Version None)
Quarter: 2008Q2

REPORT INFORMATION
  Report Type: 
  Country: None (occurrence: None)
  Receive Date: 20080401
  Receipt Date: 20080320
  Transmission Date: 20081010
  Serious: Yes (Hospitalization)
  Sender: FDA-Public Use
  Company Number: US-AVENTIS-200811832US

PATIENT
  Age: 21 Year
  Sex: Male

DRUGS (5)
  1. DDAVP [Suspect]
     Dosage: DOSE: UNK
  2. ANALGESICS [Concomitant]
     Dosage: DOSE: UNK
  3. ATARAX                             /00058402/ [Concomitant]
     Dosage: DOSE: UNK
  4. ANTIDEPRESSANTS [Concomitant]
     Dosage: DOSE: UNK
  5. GROWTH HORMONE THERAPY [Concomitant]
     Dosage: DOSE: UNK

REACTIONS (5)
  - CHILLS [None]
  - OFF LABEL USE [None]
  - OVERDOSE [None]
  - PALLOR [None]
  - POISONING [None]
